FAERS Safety Report 6959024-2 (Version None)
Quarter: 2010Q3

REPORT INFORMATION
  Report Type: 
  Country: None (occurrence: None)
  Receive Date: 20100826
  Receipt Date: 20100817
  Transmission Date: 20110219
  Serious: Yes (Hospitalization)
  Sender: FDA-Public Use
  Company Number: WAES 1006USA01365

PATIENT
  Age: 56 Year
  Sex: Female
  Weight: 99.3377 kg

DRUGS (13)
  1. COZAAR [Suspect]
     Indication: HYPERTENSION
     Dosage: 50 MG/DAILY/PO
     Route: 048
     Dates: start: 20090527
  2. BLINDED THERAPY UNK [Suspect]
     Indication: HYPERTENSION
     Dosage: 2 DOSE/DAILY/PO
     Route: 048
     Dates: start: 20090527
  3. PRILOSEC [Concomitant]
  4. ACETAMINOPHEN [Concomitant]
  5. ASPIRIN [Concomitant]
  6. CALCIUM [Concomitant]
  7. FLAXSEED [Concomitant]
  8. LYSINE [Concomitant]
  9. MAGNESIUM [Concomitant]
  10. POTASSIUM [Concomitant]
  11. VITAMIN B COMPLEX CAP [Concomitant]
  12. VITAMIN E [Concomitant]
  13. VITAMINS [Concomitant]

REACTIONS (3)
  - FALL [None]
  - HUMERUS FRACTURE [None]
  - UPPER LIMB FRACTURE [None]
